FAERS Safety Report 25769832 (Version 3)
Quarter: 2025Q4

REPORT INFORMATION
  Report Type: Spontaneous
  Country: US (occurrence: US)
  Receive Date: 20250907
  Receipt Date: 20251122
  Transmission Date: 20260118
  Serious: No
  Sender: MDD OPERATIONS
  Company Number: US-MDD US Operations-MDD202508-003090

PATIENT
  Age: 71 Year

DRUGS (1)
  1. ONAPGO [Suspect]
     Active Substance: APOMORPHINE HYDROCHLORIDE
     Indication: Parkinson^s disease
     Dosage: 2.5 MG PER HOUR CONTINUOUS FOR 16 HOURS
     Dates: start: 20250604

REACTIONS (1)
  - Cognitive disorder [Not Recovered/Not Resolved]
